FAERS Safety Report 18555565 (Version 2)
Quarter: 2020Q4

REPORT INFORMATION
  Report Type: Spontaneous
  Country: BR (occurrence: BR)
  Receive Date: 20201127
  Receipt Date: 20201218
  Transmission Date: 20210114
  Serious: Yes (Other)
  Sender: FDA-Public Use
  Company Number: BR-CELGENEUS-BRA-20201106185

PATIENT
  Sex: Male

DRUGS (3)
  1. REVLIMID [Suspect]
     Active Substance: LENALIDOMIDE
     Indication: PLASMA CELL MYELOMA
     Dosage: DOSE : UNAVAILABLE;     FREQ : UNAVAILABLE
     Route: 048
  2. REVLIMID [Suspect]
     Active Substance: LENALIDOMIDE
     Route: 048
     Dates: start: 20201127
  3. 18FDG [Concomitant]
     Active Substance: FLUDEOXYGLUCOSE F-18
     Indication: POSITRON EMISSION TOMOGRAM
     Route: 041

REACTIONS (5)
  - Cerebral disorder [Unknown]
  - Cerebral microangiopathy [Unknown]
  - Dementia with Lewy bodies [Unknown]
  - Neurodegenerative disorder [Unknown]
  - Blood glucose increased [Unknown]
